FAERS Safety Report 5640551-5 (Version None)
Quarter: 2008Q1

REPORT INFORMATION
  Report Type: 
  Country: None (occurrence: None)
  Receive Date: 20080227
  Receipt Date: 20080219
  Transmission Date: 20080703
  Serious: Yes (Other)
  Sender: FDA-Public Use
  Company Number: PHBS2008BR02427

PATIENT
  Age: 47 Year
  Sex: Female

DRUGS (3)
  1. CODATEN [Suspect]
     Dosage: UNK, ONCE/SINGLE
     Route: 048
  2. TRAMADOL HCL [Suspect]
  3. CLONAZEPAM [Suspect]

REACTIONS (2)
  - GASTRIC LAVAGE [None]
  - SUICIDE ATTEMPT [None]
